FAERS Safety Report 11081417 (Version 1)
Quarter: 2015Q2

REPORT INFORMATION
  Report Type: Spontaneous
  Country: US (occurrence: US)
  Receive Date: 20150501
  Receipt Date: 20150501
  Transmission Date: 20150821
  Serious: No
  Sender: FDA-Public Use
  Company Number: US-ABBVIE-15P-163-1332350-00

PATIENT
  Sex: Female

DRUGS (14)
  1. LACTULOSE. [Concomitant]
     Active Substance: LACTULOSE
     Indication: ENCEPHALOPATHY
  2. RIFAXIN [Concomitant]
     Indication: GASTRIC ULCER HELICOBACTER
  3. KLONOPIN [Concomitant]
     Active Substance: CLONAZEPAM
     Indication: ANXIETY
  4. PROSOURCE [Concomitant]
     Indication: PRODUCT USED FOR UNKNOWN INDICATION
  5. REMERON [Concomitant]
     Active Substance: MIRTAZAPINE
     Indication: DEPRESSION
  6. THERAVITE [Concomitant]
     Indication: VITAMIN SUPPLEMENTATION
  7. ARANESP [Concomitant]
     Active Substance: DARBEPOETIN ALFA
     Indication: RED BLOOD CELL COUNT INCREASED
  8. ALBUMIN [Concomitant]
     Active Substance: ALBUMIN (HUMAN)
     Indication: PRODUCT USED FOR UNKNOWN INDICATION
  9. LACTULOSE. [Concomitant]
     Active Substance: LACTULOSE
     Indication: HYPERCHLORHYDRIA
  10. RENVELA [Concomitant]
     Active Substance: SEVELAMER CARBONATE
     Indication: PRODUCT USED FOR UNKNOWN INDICATION
  11. FENTANYL. [Concomitant]
     Active Substance: FENTANYL
     Indication: PAIN
     Route: 062
  12. PROTONIX [Concomitant]
     Active Substance: PANTOPRAZOLE SODIUM
     Indication: PRODUCT USED FOR UNKNOWN INDICATION
  13. CREON [Suspect]
     Active Substance: PANCRELIPASE AMYLASE\PANCRELIPASE LIPASE\PANCRELIPASE PROTEASE
     Indication: PANCREATIC INSUFFICIENCY
     Dosage: VIA G-TUBE
     Route: 048
     Dates: start: 201409
  14. MIDODRINE HCL [Concomitant]
     Active Substance: MIDODRINE HYDROCHLORIDE
     Indication: PRODUCT USED FOR UNKNOWN INDICATION

REACTIONS (2)
  - Flatulence [Not Recovered/Not Resolved]
  - Abdominal distension [Not Recovered/Not Resolved]

NARRATIVE: CASE EVENT DATE: 201501
